FAERS Safety Report 5789321-8 (Version None)
Quarter: 2008Q2

REPORT INFORMATION
  Report Type: 
  Country: None (occurrence: None)
  Receive Date: 20080625
  Receipt Date: 20080625
  Transmission Date: 20081010
  Serious: No
  Sender: FDA-Public Use
  Company Number: None

PATIENT
  Sex: Female
  Weight: 68.0396 kg

DRUGS (1)
  1. SINGULAIR [Suspect]
     Indication: RHINITIS SEASONAL
     Dosage: 10 MG QD PO
     Route: 048
     Dates: start: 20050913, end: 20050923

REACTIONS (1)
  - BRADYCARDIA [None]
